FAERS Safety Report 19670471 (Version 4)
Quarter: 2022Q1

REPORT INFORMATION
  Report Type: Report from Study
  Country: DE (occurrence: DE)
  Receive Date: 20210806
  Receipt Date: 20220203
  Transmission Date: 20220423
  Serious: Yes (Death, Life-Threatening, Hospitalization, Other)
  Sender: FDA-Public Use
  Company Number: DE-JNJFOC-20210746685

PATIENT
  Age: 70 Year
  Sex: Female
  Weight: 89 kg

DRUGS (10)
  1. AMIVANTAMAB [Suspect]
     Active Substance: AMIVANTAMAB
     Indication: Non-small cell lung cancer
     Dosage: MOST RECENT DOSE: 13-JUL-2021
     Route: 042
     Dates: start: 20210616
  2. PANTOPRAZOLE [Concomitant]
     Active Substance: PANTOPRAZOLE
     Indication: Gastrointestinal disorder therapy
     Dosage: START DATE-  //2021
     Route: 048
  3. BISOPROLOL [Concomitant]
     Active Substance: BISOPROLOL
     Indication: Hypertension
     Dosage: START DATE-  //2005
     Route: 048
  4. HYDROMORPHONE [Concomitant]
     Active Substance: HYDROMORPHONE
     Indication: Pain
     Dosage: START DATE-  //2021
     Route: 048
  5. PREDNISOLONE [Concomitant]
     Active Substance: PREDNISOLONE
     Indication: Arthralgia
     Dosage: START DATE-  //2021
     Route: 048
  6. ORTHOMOL I CARE [Concomitant]
     Indication: Vitamin supplementation
     Dosage: START DATE-  //2021
     Route: 048
  7. POLYETHYLENE GLYCOLS [Concomitant]
     Active Substance: POLYETHYLENE GLYCOLS
     Indication: Constipation
     Dosage: START DATE-  //2021
     Route: 048
  8. CODEINE [Concomitant]
     Active Substance: CODEINE
     Indication: Cough
     Dosage: 15 DROPS
     Route: 048
  9. CODEINE [Concomitant]
     Active Substance: CODEINE
     Dosage: 30 DROPS; THERAPY START DATE //2021
     Route: 048
  10. MIRTAZAPINE [Concomitant]
     Active Substance: MIRTAZAPINE
     Indication: Insomnia
     Route: 048

REACTIONS (4)
  - Acute respiratory failure [Fatal]
  - Pneumonitis [Not Recovered/Not Resolved]
  - Dyspnoea [Not Recovered/Not Resolved]
  - General physical health deterioration [Recovered/Resolved]

NARRATIVE: CASE EVENT DATE: 20210716
